FAERS Safety Report 26174985 (Version 1)
Quarter: 2025Q4

REPORT INFORMATION
  Report Type: Spontaneous
  Country: GB (occurrence: GB)
  Receive Date: 20251218
  Receipt Date: 20251218
  Transmission Date: 20260118
  Serious: Yes (Other)
  Sender: PFIZER
  Company Number: GB-ROCHE-10000453633

PATIENT
  Age: 67 Year
  Sex: Female

DRUGS (12)
  1. CARBOPLATIN [Suspect]
     Active Substance: CARBOPLATIN
     Indication: Small cell lung cancer
     Dosage: 560 MG
     Dates: start: 20201105
  2. ATEZOLIZUMAB [Suspect]
     Active Substance: ATEZOLIZUMAB
     Indication: Small cell lung cancer
     Dosage: UNK
     Dates: start: 20201105
  3. ATEZOLIZUMAB [Suspect]
     Active Substance: ATEZOLIZUMAB
     Dosage: 1680 MG EVERY 4 WEEKS
     Dates: start: 20230217
  4. ATEZOLIZUMAB [Suspect]
     Active Substance: ATEZOLIZUMAB
     Dosage: 1200 MG, EVERY 3 WEEKS
     Dates: start: 20210204
  5. ATEZOLIZUMAB [Suspect]
     Active Substance: ATEZOLIZUMAB
     Dosage: 1875 MG, EVERY 3 WEEKS
     Route: 058
     Dates: start: 20250213
  6. ATEZOLIZUMAB [Suspect]
     Active Substance: ATEZOLIZUMAB
     Dosage: 1680 MG, EVERY 3 WEEKS
     Route: 058
     Dates: start: 202511
  7. ETOPOSIDE [Suspect]
     Active Substance: ETOPOSIDE
     Indication: Small cell lung cancer
     Dosage: 180 MG
     Route: 042
     Dates: start: 20201105
  8. ETOPOSIDE [Suspect]
     Active Substance: ETOPOSIDE
     Dosage: 350 UNK
     Route: 048
     Dates: start: 20201105
  9. GRANULOCYTE COLONY-STIMULATING FACTOR NOS [Suspect]
     Active Substance: GRANULOCYTE COLONY-STIMULATING FACTOR NOS
     Indication: Small cell lung cancer
     Dosage: UNK (D5-10)
  10. ATORVASTATIN [Concomitant]
     Active Substance: ATORVASTATIN
  11. QUININE [Concomitant]
     Active Substance: QUININE
     Dosage: UNK
  12. OMEPRAZOLE [Concomitant]
     Active Substance: OMEPRAZOLE
     Dosage: UNK

REACTIONS (9)
  - Ill-defined disorder [Recovered/Resolved]
  - Hypothyroidism [Unknown]
  - Lung consolidation [Recovered/Resolved]
  - Lung disorder [Recovered/Resolved]
  - Oesophageal disorder [Unknown]
  - Hepatic cyst [Unknown]
  - Skin toxicity [Unknown]
  - Arthropathy [Unknown]
  - Inflammation [Recovered/Resolved]

NARRATIVE: CASE EVENT DATE: 20210201
